FAERS Safety Report 9698691 (Version 2)
Quarter: 2013Q4

REPORT INFORMATION
  Report Type: Report from Study
  Country: JP (occurrence: JP)
  Receive Date: 20131120
  Receipt Date: 20131127
  Transmission Date: 20140711
  Serious: Yes (Death)
  Sender: FDA-Public Use
  Company Number: JP-PFIZER INC-2013326890

PATIENT
  Age: 82 Year
  Sex: Male
  Weight: 62 kg

DRUGS (14)
  1. REVATIO [Suspect]
     Indication: PULMONARY ARTERIAL HYPERTENSION
     Dosage: 20 MG, 3X/DAY
     Route: 048
     Dates: start: 20110201
  2. CARELOAD [Concomitant]
     Indication: PULMONARY HYPERTENSION
     Dosage: UNK
     Route: 048
     Dates: start: 20110201
  3. NU LOTAN [Concomitant]
     Dosage: UNK
     Route: 048
  4. ADALAT CR [Concomitant]
     Dosage: UNK
     Route: 048
  5. MAIBASTAN [Concomitant]
     Dosage: UNK
     Route: 048
  6. LUPRAC [Concomitant]
     Dosage: UNK
     Route: 048
  7. OMEPRAL [Concomitant]
     Dosage: UNK
     Route: 048
  8. ARTIST [Concomitant]
     Dosage: UNK
     Route: 048
     Dates: start: 20110117
  9. HACHIMIJIO-GAN [Concomitant]
     Dosage: UNK
     Route: 048
     Dates: start: 20110117
  10. EPL CAP. [Concomitant]
     Dosage: UNK
     Route: 048
  11. ULCERLMIN [Concomitant]
     Dosage: UNK
     Route: 048
  12. MAGMITT [Concomitant]
     Dosage: UNK
     Route: 048
  13. PURSENNID [Concomitant]
     Dosage: UNK
     Route: 048
  14. TRACLEER [Concomitant]
     Dosage: UNK

REACTIONS (1)
  - Cardiac failure [Fatal]
